FAERS Safety Report 19505085 (Version 1)
Quarter: 2021Q3

REPORT INFORMATION
  Report Type: Spontaneous
  Country: BY (occurrence: BY)
  Receive Date: 20210707
  Receipt Date: 20210707
  Transmission Date: 20211014
  Serious: Yes (Hospitalization)
  Sender: FDA-Public Use
  Company Number: None

PATIENT
  Age: 35 Year
  Sex: Male
  Weight: 100 kg

DRUGS (3)
  1. LEBEL (LEVOFLOXACIN) [Suspect]
     Active Substance: LEVOFLOXACIN
     Indication: PROSTATIC PAIN
  2. RETINOL ACETATE [Concomitant]
  3. DOXYCYCLINE. [Concomitant]
     Active Substance: DOXYCYCLINE

REACTIONS (10)
  - Paraesthesia [None]
  - Gait disturbance [None]
  - Arthralgia [None]
  - Tendon disorder [None]
  - Exercise tolerance decreased [None]
  - Joint noise [None]
  - Fatigue [None]
  - Tendon pain [None]
  - Depression [None]
  - Feeling of despair [None]

NARRATIVE: CASE EVENT DATE: 20210519
